FAERS Safety Report 10668235 (Version 1)
Quarter: 2014Q4

REPORT INFORMATION
  Report Type: Spontaneous
  Country: US (occurrence: US)
  Receive Date: 20141222
  Receipt Date: 20141222
  Transmission Date: 20150529
  Serious: Yes (Disabling, Congenital Anomaly, Other)
  Sender: FDA-Public Use
  Company Number: US-ABBVIE-14P-163-1324492-00

PATIENT

DRUGS (1)
  1. DEPAKOTE [Suspect]
     Active Substance: DIVALPROEX SODIUM
     Indication: MATERNAL EXPOSURE TIMING UNSPECIFIED
     Route: 064

REACTIONS (18)
  - Emotional distress [Unknown]
  - Mental impairment [Unknown]
  - Neural tube defect [Unknown]
  - Foetal exposure during pregnancy [Unknown]
  - Life expectancy shortened [Unknown]
  - Physical disability [Unknown]
  - Deformity [Unknown]
  - Pain [Unknown]
  - Injury [Unknown]
  - Social problem [Unknown]
  - Anhedonia [Unknown]
  - Economic problem [Unknown]
  - Anxiety [Unknown]
  - Spina bifida [Unknown]
  - Congenital anomaly [Unknown]
  - Impaired work ability [Unknown]
  - Activities of daily living impaired [Unknown]
  - Congenital cardiovascular anomaly [Unknown]
